FAERS Safety Report 8425456-9 (Version None)
Quarter: 2012Q2

REPORT INFORMATION
  Report Type: 
  Country: None (occurrence: None)
  Receive Date: 20120605
  Receipt Date: 20120522
  Transmission Date: 20120825
  Serious: Yes (Other)
  Sender: FDA-Public Use
  Company Number: DSJ-2012-05558

PATIENT
  Age: 62 Year
  Sex: Male

DRUGS (4)
  1. BENICAR HCT [Suspect]
     Indication: HYPERTENSION
     Dosage: 20/12.5 MG (1 IN 1 D), PER ORAL; 20/12.5MG (1 IN 1D), PER ORAL; 40/12.5MG (1 IN 1 D), PER ORAL
     Route: 048
     Dates: start: 20120401
  2. BENICAR HCT [Suspect]
     Indication: HYPERTENSION
     Dosage: 20/12.5 MG (1 IN 1 D), PER ORAL; 20/12.5MG (1 IN 1D), PER ORAL; 40/12.5MG (1 IN 1 D), PER ORAL
     Route: 048
     Dates: start: 20060101, end: 20120301
  3. BENICAR HCT [Suspect]
     Indication: HYPERTENSION
     Dosage: 20/12.5 MG (1 IN 1 D), PER ORAL; 20/12.5MG (1 IN 1D), PER ORAL; 40/12.5MG (1 IN 1 D), PER ORAL
     Route: 048
     Dates: start: 20120301, end: 20120401
  4. OMPERAZOLE (OMEPRAZOLE) (OMEPRAZOLE) [Concomitant]

REACTIONS (4)
  - HYPERCHOLESTEROLAEMIA [None]
  - DRUG INEFFECTIVE [None]
  - CATARACT [None]
  - BLOOD PRESSURE FLUCTUATION [None]
